FAERS Safety Report 14600913 (Version 1)
Quarter: 2018Q1

REPORT INFORMATION
  Report Type: Report from Study
  Country: JP (occurrence: JP)
  Receive Date: 20180305
  Receipt Date: 20180305
  Transmission Date: 20180509
  Serious: Yes (Life-Threatening, Hospitalization, Other)
  Sender: FDA-Public Use
  Company Number: JP-ACTELION-A-CH2018-168627

PATIENT
  Age: 76 Year
  Sex: Male

DRUGS (34)
  1. VENTAVIS [Suspect]
     Active Substance: ILOPROST
     Indication: PULMONARY ARTERIAL HYPERTENSION
     Dosage: UNK
     Route: 055
     Dates: end: 20161206
  2. PITAVASTATIN CA [Concomitant]
     Active Substance: PITAVASTATIN CALCIUM
  3. BISOPROLOL [Concomitant]
     Active Substance: BISOPROLOL
  4. SPIRONOLACTONE. [Concomitant]
     Active Substance: SPIRONOLACTONE
  5. HUMULIN R [Concomitant]
     Active Substance: INSULIN HUMAN
  6. SOLDACTONE [Concomitant]
     Active Substance: CANRENOATE POTASSIUM
  7. OXYGEN. [Concomitant]
     Active Substance: OXYGEN
  8. DIART [Concomitant]
     Active Substance: AZOSEMIDE
  9. JARDIANCE [Concomitant]
     Active Substance: EMPAGLIFLOZIN
  10. LIXIANA [Concomitant]
     Active Substance: EDOXABAN TOSYLATE
  11. ULTIBRO [Concomitant]
     Active Substance: GLYCOPYRRONIUM\INDACATEROL
  12. MUCOSOLVAN [Concomitant]
     Active Substance: AMBROXOL HYDROCHLORIDE
  13. SENNOSIDE [Concomitant]
     Active Substance: SENNOSIDES
  14. CARBOCISTEINE [Concomitant]
     Active Substance: CARBOCYSTEINE
  15. SAMSCA [Concomitant]
     Active Substance: TOLVAPTAN
  16. ASPARA POTASSIUM [Concomitant]
     Active Substance: POTASSIUM ASPARTATE
  17. LASIX [Concomitant]
     Active Substance: FUROSEMIDE
  18. OPSUMIT [Suspect]
     Active Substance: MACITENTAN
     Indication: PULMONARY ARTERIAL HYPERTENSION
     Dosage: 10 MG, QD
     Route: 048
     Dates: start: 20161115
  19. TAKELDA [Concomitant]
     Active Substance: ASPIRIN\LANSOPRAZOLE
  20. PLAVIX [Concomitant]
     Active Substance: CLOPIDOGREL BISULFATE
  21. CANDESARTAN. [Concomitant]
     Active Substance: CANDESARTAN
  22. QUETIAPINE. [Concomitant]
     Active Substance: QUETIAPINE
  23. BELSOMRA [Concomitant]
     Active Substance: SUVOREXANT
  24. RISPERDAL [Concomitant]
     Active Substance: RISPERIDONE
  25. KALIMATE [Concomitant]
     Active Substance: CALCIUM POLYSTYRENE SULFONATE
  26. MIYA-BM [Concomitant]
     Active Substance: CLOSTRIDIUM BUTYRICUM SPORES STRAIN M-55
  27. TANATRIL [Concomitant]
     Active Substance: IMIDAPRIL
  28. REVATIO [Concomitant]
     Active Substance: SILDENAFIL CITRATE
  29. DOBUPUM [Concomitant]
     Active Substance: DOBUTAMINE HYDROCHLORIDE
  30. PREDNISOLONE. [Concomitant]
     Active Substance: PREDNISOLONE
     Dosage: UNK
     Dates: start: 20161207
  31. AMLODIPINE [Concomitant]
     Active Substance: AMLODIPINE BESYLATE
  32. MAGNESIUM OXIDE. [Concomitant]
     Active Substance: MAGNESIUM OXIDE
  33. SLOW-K [Concomitant]
     Active Substance: POTASSIUM CHLORIDE
  34. INOVAN [Concomitant]
     Active Substance: DOPAMINE HYDROCHLORIDE

REACTIONS (6)
  - Mechanical ventilation [Unknown]
  - Haemoptysis [Recovering/Resolving]
  - Cough [Unknown]
  - Pneumonia influenzal [Unknown]
  - Respiratory tract haemorrhage [Recovering/Resolving]
  - Pyrexia [Unknown]

NARRATIVE: CASE EVENT DATE: 20161203
